FAERS Safety Report 6309005-7 (Version None)
Quarter: 2009Q3

REPORT INFORMATION
  Report Type: 
  Country: None (occurrence: None)
  Receive Date: 20090813
  Receipt Date: 20090803
  Transmission Date: 20100115
  Serious: Yes (Death)
  Sender: FDA-Public Use
  Company Number: US-ABBOTT-09P-163-0588868-00

PATIENT
  Age: 52 Year
  Sex: Female
  Weight: 61.29 kg

DRUGS (6)
  1. VICODIN [Suspect]
     Indication: BACK PAIN
     Dosage: 6-8 DOSES DAILY FOR OVER A YEAR
     Route: 048
  2. VICODIN [Suspect]
     Indication: OSTEOPOROSIS
  3. ACETAMINOPHEN [Suspect]
     Indication: BACK PAIN
  4. ACETAMINOPHEN [Suspect]
     Indication: OSTEOPOROSIS
  5. TYLENOL ARTHRITIS EXTENDED RELIEF [Suspect]
     Indication: BACK PAIN
     Dosage: 13000 MG IN 48 HOURS
     Route: 048
     Dates: start: 20090416, end: 20090417
  6. TYLENOL ARTHRITIS EXTENDED RELIEF [Suspect]
     Indication: OSTEOPOROSIS

REACTIONS (2)
  - DRUG ADMINISTRATION ERROR [None]
  - INTENTIONAL OVERDOSE [None]
